FAERS Safety Report 25772599 (Version 1)
Quarter: 2025Q3

REPORT INFORMATION
  Report Type: Spontaneous
  Country: US (occurrence: None)
  Receive Date: 20250905
  Receipt Date: 20250905
  Transmission Date: 20251020
  Serious: Yes (Disabling)
  Sender: FDA-CTU
  Company Number: None

PATIENT
  Age: 26 Year
  Sex: Female

DRUGS (11)
  1. VYVANSE [Suspect]
     Active Substance: LISDEXAMFETAMINE DIMESYLATE
     Indication: Attention deficit hyperactivity disorder
     Route: 048
     Dates: start: 20250725, end: 20250728
  2. drosporenone/EE [Concomitant]
  3. QULIPTA [Concomitant]
     Active Substance: ATOGEPANT
  4. TRAZODONE [Concomitant]
     Active Substance: TRAZODONE HYDROCHLORIDE
  5. DOCUSATE SODIUM [Concomitant]
     Active Substance: DOCUSATE SODIUM
  6. GUANFACINE [Concomitant]
     Active Substance: GUANFACINE
  7. OMEPRAZOLE [Concomitant]
     Active Substance: OMEPRAZOLE
  8. FERROUS GLUCONATE [Concomitant]
     Active Substance: FERROUS GLUCONATE
  9. I-theanine [Concomitant]
  10. MAGNESIUM GLYCINATE [Concomitant]
     Active Substance: MAGNESIUM GLYCINATE
  11. VITAMIN D3 [Concomitant]
     Active Substance: CHOLECALCIFEROL

REACTIONS (14)
  - Abdominal pain upper [None]
  - Loss of personal independence in daily activities [None]
  - Diarrhoea [None]
  - Nausea [None]
  - Flatulence [None]
  - Abdominal distension [None]
  - Apathy [None]
  - Hyperhidrosis [None]
  - Migraine [None]
  - Anxiety [None]
  - Palpitations [None]
  - Feeling jittery [None]
  - Restlessness [None]
  - Sleep disorder [None]
